FAERS Safety Report 23449646 (Version 1)
Quarter: 2024Q1

REPORT INFORMATION
  Report Type: Spontaneous
  Country: US (occurrence: US)
  Receive Date: 20240129
  Receipt Date: 20240129
  Transmission Date: 20240410
  Serious: No
  Sender: FDA-Public Use
  Company Number: US-OPELLA-2024OHG002113

PATIENT
  Sex: Male

DRUGS (2)
  1. GOLD BOND MEDICATED ADVANCED HEALING [Suspect]
     Active Substance: PETROLATUM
     Indication: Tinea infection
  2. GOLD BOND MEDICATED ADVANCED HEALING [Suspect]
     Active Substance: PETROLATUM
     Indication: Pigmentation disorder

REACTIONS (2)
  - No adverse event [Unknown]
  - Drug effective for unapproved indication [Unknown]
